FAERS Safety Report 25785913 (Version 3)
Quarter: 2025Q4

REPORT INFORMATION
  Report Type: Report from Study
  Country: US (occurrence: US)
  Receive Date: 20250910
  Receipt Date: 20251125
  Transmission Date: 20260118
  Serious: Yes (Other)
  Sender: ACADIA PHARMACEUTICALS
  Company Number: US-ACADIA PHARMACEUTICALS INC.-ACA-2025-PIM-009996

PATIENT
  Age: 67 Year
  Sex: Male

DRUGS (21)
  1. NUPLAZID [Suspect]
     Active Substance: PIMAVANSERIN TARTRATE
     Indication: Parkinson^s disease psychosis
     Dosage: 34 MILLIGRAM, QD
     Route: 048
     Dates: start: 20241204
  2. SPIRONOLACTONE [Suspect]
     Active Substance: SPIRONOLACTONE
     Indication: Product used for unknown indication
     Dosage: 25 MILLIGRAM, BID
     Route: 065
     Dates: start: 20250819
  3. SPIRONOLACTONE [Suspect]
     Active Substance: SPIRONOLACTONE
     Dosage: REDUCED DOSE
     Route: 065
     Dates: end: 20250824
  4. AMANTADINE [Concomitant]
     Active Substance: AMANTADINE
  5. AMLODIPINE [Concomitant]
     Active Substance: AMLODIPINE BESYLATE
  6. ASPIRIN [Concomitant]
     Active Substance: ASPIRIN
  7. ATORVASTATIN [Concomitant]
     Active Substance: ATORVASTATIN
  8. CARBIDOPA\LEVODOPA [Concomitant]
     Active Substance: CARBIDOPA\LEVODOPA
  9. CLONAZEPAM [Concomitant]
     Active Substance: CLONAZEPAM
  10. CYANOCOBALAMIN [Concomitant]
     Active Substance: CYANOCOBALAMIN
  11. DULOXETINE [Concomitant]
     Active Substance: DULOXETINE
  12. FINASTERIDE [Concomitant]
     Active Substance: FINASTERIDE
  13. LINZESS [Concomitant]
     Active Substance: LINACLOTIDE
  14. LOSARTAN [Concomitant]
     Active Substance: LOSARTAN
  15. MELATONIN [Concomitant]
     Active Substance: MELATONIN
  16. NIFEDIPINE [Concomitant]
     Active Substance: NIFEDIPINE
  17. NITROGLYCERIN [Concomitant]
     Active Substance: NITROGLYCERIN
  18. POLYETHYLENE GLYCOL 3350 [Concomitant]
     Active Substance: POLYETHYLENE GLYCOL 3350
  19. PYRIDOXINE [Concomitant]
     Active Substance: PYRIDOXINE
  20. SILDENAFIL [Concomitant]
     Active Substance: SILDENAFIL
  21. SOLIFENACIN [Concomitant]
     Active Substance: SOLIFENACIN

REACTIONS (2)
  - Knee operation [Unknown]
  - Nervousness [Recovered/Resolved]

NARRATIVE: CASE EVENT DATE: 20250823
